FAERS Safety Report 4915395-X (Version None)
Quarter: 2006Q1

REPORT INFORMATION
  Report Type: 
  Country: None (occurrence: None)
  Receive Date: 20060217
  Receipt Date: 20050713
  Transmission Date: 20060701
  Serious: Yes (Other)
  Sender: FDA-Public Use
  Company Number: US-MERCK-0507USA01794

PATIENT
  Age: 64 Year
  Sex: Female
  Weight: 73 kg

DRUGS (2)
  1. VIOXX [Suspect]
     Indication: ARTHRITIS
     Route: 048
     Dates: start: 19990101, end: 20000101
  2. VIOXX [Suspect]
     Route: 048
     Dates: start: 20000101, end: 20030101

REACTIONS (20)
  - ADVERSE EVENT [None]
  - ANAEMIA [None]
  - ARTHRALGIA [None]
  - BRONCHITIS [None]
  - CARDIAC DISORDER [None]
  - CARDIAC FAILURE CONGESTIVE [None]
  - CARDIOMEGALY [None]
  - CHEST PAIN [None]
  - CONTUSION [None]
  - COUGH [None]
  - DIASTOLIC DYSFUNCTION [None]
  - DYSPNOEA [None]
  - EMOTIONAL DISORDER [None]
  - FALL [None]
  - HYPERTENSION [None]
  - HYPERTROPHIC CARDIOMYOPATHY [None]
  - MYOCARDIAL INFARCTION [None]
  - PULMONARY CONGESTION [None]
  - ROAD TRAFFIC ACCIDENT [None]
  - VISION BLURRED [None]
